FAERS Safety Report 4799896-3 (Version None)
Quarter: 2005Q4

REPORT INFORMATION
  Report Type: 
  Country: None (occurrence: None)
  Receive Date: 20051013
  Receipt Date: 20051007
  Transmission Date: 20060501
  Serious: Yes (Death)
  Sender: FDA-Public Use
  Company Number: HQWYE944110OCT05

PATIENT
  Age: 32 Year
  Sex: Male

DRUGS (3)
  1. EFFEXOR [Suspect]
     Dosage: SEE IMAGE
     Route: 048
  2. ALCOHOL (ETHANOL,) [Suspect]
     Dosage: ^A BOTTLE OF VODKA^ ORAL
     Route: 048
  3. SEROQUEL [Suspect]
     Dosage: ORAL
     Route: 048

REACTIONS (7)
  - ASPIRATION [None]
  - COMPLETED SUICIDE [None]
  - DELIRIUM [None]
  - FALL [None]
  - HALLUCINATION, AUDITORY [None]
  - INTENTIONAL DRUG MISUSE [None]
  - OVERDOSE [None]
